FAERS Safety Report 12506579 (Version 1)
Quarter: 2016Q2

REPORT INFORMATION
  Report Type: Spontaneous
  Country: US (occurrence: US)
  Receive Date: 20160628
  Receipt Date: 20160628
  Transmission Date: 20160815
  Serious: No
  Sender: FDA-Public Use
  Company Number: US-009507513-1606USA007877

PATIENT
  Age: 21 Year
  Sex: Female

DRUGS (1)
  1. NUVARING [Suspect]
     Active Substance: ETHINYL ESTRADIOL\ETONOGESTREL
     Dosage: 1 DF, UNK
     Route: 067
     Dates: start: 20160612

REACTIONS (7)
  - Chest discomfort [Unknown]
  - Muscle spasms [Unknown]
  - Fear [Unknown]
  - Pain [Unknown]
  - Device expulsion [Unknown]
  - Dyspnoea [Unknown]
  - Abdominal distension [Unknown]

NARRATIVE: CASE EVENT DATE: 20160614
